FAERS Safety Report 23935158 (Version 2)
Quarter: 2024Q3

REPORT INFORMATION
  Report Type: Spontaneous
  Country: HU (occurrence: HU)
  Receive Date: 20240604
  Receipt Date: 20240711
  Transmission Date: 20241016
  Serious: Yes (Other)
  Sender: BRISTOL MYERS SQUIBB
  Company Number: HU-BRISTOL-MYERS SQUIBB COMPANY-2024-043216

PATIENT
  Age: 68 Year
  Sex: Male

DRUGS (13)
  1. OPDIVO [Suspect]
     Active Substance: NIVOLUMAB
     Indication: Malignant melanoma
     Dosage: DOSE : 1;     FREQ : UNAVAILABLE
     Route: 042
     Dates: start: 20230302, end: 202304
  2. BENFOTIAMINE [Concomitant]
     Active Substance: BENFOTIAMINE
     Dosage: D: 1 TBL
  3. MESTINON [Concomitant]
     Active Substance: PYRIDOSTIGMINE BROMIDE
     Dosage: 1-2 DRG PER DAY, 3X1-4X1 DRG
  4. .ALPHA.-LIPOIC ACID [Concomitant]
     Active Substance: .ALPHA.-LIPOIC ACID
     Dosage: 2X1
  5. MICARDIS [Concomitant]
     Active Substance: TELMISARTAN
     Dosage: 40 MG) 2X1
  6. TELMISARTAN [Concomitant]
     Active Substance: TELMISARTAN
     Dosage: 40 MG) 2X1
  7. APIDRA [Concomitant]
     Active Substance: INSULIN GLULISINE
     Dosage: 20E, 18E, 18E
  8. INSULIN GLARGINE [Concomitant]
     Active Substance: INSULIN GLARGINE
     Dosage: 44E EVENING
  9. MEDROL [Concomitant]
     Active Substance: METHYLPREDNISOLONE
     Dosage: (CURRENTLY -2024 05 02) IS NOT TAKING
  10. RITUXIMAB [Concomitant]
     Active Substance: RITUXIMAB
     Dosage: 2X1000 MG RTX 2 WEEKS APART, 6 MONTHS LATERREPEATED).
     Dates: start: 20231009
  11. CHLOROPYRAMINE HYDROCHLORIDE [Concomitant]
     Active Substance: CHLOROPYRAMINE HYDROCHLORIDE
     Dosage: 1 TBL
  12. ACETAMINOPHEN [Concomitant]
     Active Substance: ACETAMINOPHEN
     Dosage: 500 MG ORALLY 45 MINUTES BEFORE INFUSION
     Route: 048
  13. DIETARY SUPPLEMENT\HERBALS\MILK THISTLE [Concomitant]
     Active Substance: MILK THISTLE
     Dosage: 1 TBL IN THE EVENING

REACTIONS (16)
  - Myasthenia gravis [Recovering/Resolving]
  - Neuropathy peripheral [Unknown]
  - Meningioma [Not Recovered/Not Resolved]
  - Spinal osteoarthritis [Unknown]
  - Intervertebral disc protrusion [Unknown]
  - IIIrd nerve paresis [Unknown]
  - Drug intolerance [Unknown]
  - Fatigue [Unknown]
  - Neck pain [Unknown]
  - Anosmia [Unknown]
  - Hepatic enzyme abnormal [Unknown]
  - Anaemia [Unknown]
  - Blood lactate dehydrogenase increased [Unknown]
  - Hypomagnesaemia [Unknown]
  - Blood creatine phosphokinase increased [Unknown]
  - Type 1 diabetes mellitus [Unknown]

NARRATIVE: CASE EVENT DATE: 20230301
